FAERS Safety Report 16021173 (Version 1)
Quarter: 2019Q1

REPORT INFORMATION
  Report Type: Spontaneous
  Country: DE (occurrence: DE)
  Receive Date: 20190301
  Receipt Date: 20190301
  Transmission Date: 20190418
  Serious: Yes (Life-Threatening, Other)
  Sender: FDA-Public Use
  Company Number: DE-BAXTER-2019BAX003900

PATIENT
  Age: 23 Year
  Sex: Female

DRUGS (18)
  1. PROPOFOL CLARIS 2 % (20 MG/ML) MCT EMULSION ZUR INJEKTION/INFUSION [Suspect]
     Active Substance: PROPOFOL
     Indication: DYSKINESIA
     Route: 042
  2. SUFENTANIL [Suspect]
     Active Substance: SUFENTANIL
     Indication: DYSKINESIA
     Route: 042
  3. PREDNISOLONE. [Concomitant]
     Active Substance: PREDNISOLONE
     Indication: ENCEPHALITIS AUTOIMMUNE
     Route: 048
  4. GAMMA-HYDROXYBUTYRATE [Suspect]
     Active Substance: 4-HYDROXYBUTANOIC ACID
     Indication: DYSKINESIA
     Route: 042
  5. METHYLPREDNISOLONE. [Concomitant]
     Active Substance: METHYLPREDNISOLONE
     Indication: ENCEPHALITIS AUTOIMMUNE
     Route: 042
  6. ISOFLURAN BAXTER [Suspect]
     Active Substance: ISOFLURANE
     Indication: DYSKINESIA
     Route: 065
  7. ISOFLURAN BAXTER [Suspect]
     Active Substance: ISOFLURANE
     Indication: AUTONOMIC NERVOUS SYSTEM IMBALANCE
     Dosage: REDUCED DOSE
     Route: 065
  8. PROPOFOL CLARIS 2 % (20 MG/ML) MCT EMULSION ZUR INJEKTION/INFUSION [Suspect]
     Active Substance: PROPOFOL
     Indication: AUTONOMIC NERVOUS SYSTEM IMBALANCE
     Route: 042
  9. ESKETAMINE [Suspect]
     Active Substance: ESKETAMINE
     Indication: DYSKINESIA
     Route: 042
  10. MIDAZOLAM [Suspect]
     Active Substance: MIDAZOLAM HYDROCHLORIDE
     Indication: DYSKINESIA
     Route: 042
  11. MIDAZOLAM [Suspect]
     Active Substance: MIDAZOLAM HYDROCHLORIDE
     Indication: AUTONOMIC NERVOUS SYSTEM IMBALANCE
     Route: 042
  12. IMMUNOGLOBULINS [Concomitant]
     Active Substance: IMMUNE GLOBULIN NOS
     Indication: ENCEPHALITIS AUTOIMMUNE
     Route: 042
  13. PREDNISOLONE. [Concomitant]
     Active Substance: PREDNISOLONE
     Dosage: TAPERING (20 MG EVERY SECOND DAY)
     Route: 048
  14. SUFENTANIL [Suspect]
     Active Substance: SUFENTANIL
     Indication: AUTONOMIC NERVOUS SYSTEM IMBALANCE
     Route: 042
  15. GAMMA-HYDROXYBUTYRATE [Suspect]
     Active Substance: 4-HYDROXYBUTANOIC ACID
     Indication: AUTONOMIC NERVOUS SYSTEM IMBALANCE
     Route: 042
  16. RITUXIMAB. [Concomitant]
     Active Substance: RITUXIMAB
     Indication: ENCEPHALITIS AUTOIMMUNE
     Route: 065
  17. ISOFLURAN BAXTER [Suspect]
     Active Substance: ISOFLURANE
     Dosage: HIGH CONCENTRATIONS (1.2 END TIDAL VOLUME%) WERE MAINTAINED
     Route: 065
  18. ESKETAMINE [Suspect]
     Active Substance: ESKETAMINE
     Indication: AUTONOMIC NERVOUS SYSTEM IMBALANCE
     Route: 042

REACTIONS (8)
  - Mitochondrial toxicity [Recovered/Resolved]
  - Paralysis [None]
  - Neuromyopathy [None]
  - Cerebellar atrophy [None]
  - Drug ineffective [Recovered/Resolved]
  - Posterior reversible encephalopathy syndrome [Unknown]
  - Drug-induced liver injury [Recovered/Resolved]
  - Cerebellar ataxia [None]
